FAERS Safety Report 5889765-X (Version None)
Quarter: 2008Q3

REPORT INFORMATION
  Report Type: 
  Country: None (occurrence: None)
  Receive Date: 20080919
  Receipt Date: 20080908
  Transmission Date: 20090109
  Serious: Yes (Hospitalization)
  Sender: FDA-Public Use
  Company Number: LB-ELI_LILLY_AND_COMPANY-LB200809001825

PATIENT
  Age: 21 Year
  Sex: Female

DRUGS (4)
  1. OLANZAPINE [Suspect]
     Indication: BRIEF PSYCHOTIC DISORDER, WITH POSTPARTUM ONSET
     Dosage: 10 MG, UNK
     Route: 048
  2. OLANZAPINE [Suspect]
     Dosage: 5 MG, UNK
     Route: 042
  3. OLANZAPINE [Suspect]
     Dosage: 10 MG, UNK
     Route: 030
  4. LARGACTIL [Concomitant]
     Indication: SCHIZOPHRENIA

REACTIONS (4)
  - DRUG ADMINISTRATION ERROR [None]
  - RESPIRATORY THERAPY [None]
  - SCHIZOPHRENIA [None]
  - SUICIDE ATTEMPT [None]
